FAERS Safety Report 12603182 (Version 1)
Quarter: 2016Q3

REPORT INFORMATION
  Report Type: Spontaneous
  Country: US (occurrence: US)
  Receive Date: 20160728
  Receipt Date: 20160728
  Transmission Date: 20161109
  Serious: Yes (Hospitalization, Other)
  Sender: FDA-Public Use
  Company Number: US-ALKERMES INC.-ALK-2016-001924

PATIENT
  Age: 22 Year
  Sex: Male
  Weight: 68.27 kg

DRUGS (1)
  1. VIVITROL [Suspect]
     Active Substance: NALTREXONE
     Indication: DRUG DEPENDENCE
     Dosage: 380 MG, QMO
     Route: 030
     Dates: start: 20160430

REACTIONS (7)
  - Joint dislocation [Unknown]
  - Alcohol use [Unknown]
  - Drug dependence [Recovered/Resolved]
  - Increased appetite [Unknown]
  - Facial bones fracture [Unknown]
  - Euphoric mood [Unknown]
  - Drug dose omission [Recovered/Resolved]

NARRATIVE: CASE EVENT DATE: 20160714
